FAERS Safety Report 7239198-9 (Version None)
Quarter: 2011Q1

REPORT INFORMATION
  Report Type: 
  Country: None (occurrence: None)
  Receive Date: 20110121
  Receipt Date: 20110114
  Transmission Date: 20110831
  Serious: Yes (Death)
  Sender: FDA-Public Use
  Company Number: US-ABBOTT-11P-163-0698475-00

PATIENT
  Age: 53 Year
  Sex: Male

DRUGS (6)
  1. MARIJUANA [Suspect]
     Indication: PRODUCT USED FOR UNKNOWN INDICATION
     Dosage: INGESTION, INHALATION AND PARENTERAL
  2. ACETYLCYSTEINE [Suspect]
     Indication: PRODUCT USED FOR UNKNOWN INDICATION
     Dosage: INGESTION, INHALATION AND PARENTERAL
  3. SKELETAL MUSCLE RELAXANT [Suspect]
     Indication: PRODUCT USED FOR UNKNOWN INDICATION
     Dosage: INGESTION, INHALATION AND PARENTERAL
  4. METHAMPHETAMINE [Suspect]
     Indication: PRODUCT USED FOR UNKNOWN INDICATION
     Dosage: INGESTION, INHALATION AND PARENTERAL
  5. CODEINE [Suspect]
     Indication: PRODUCT USED FOR UNKNOWN INDICATION
     Dosage: INGESTION, INHALATION AND PARENTERAL
  6. ACETAMINOPHEN AND HYDROCODONE BITARTRATE [Suspect]
     Indication: PRODUCT USED FOR UNKNOWN INDICATION
     Dosage: INGESTION, INHALATION AND PARENTERAL

REACTIONS (7)
  - HEPATITIS B [None]
  - TOXICITY TO VARIOUS AGENTS [None]
  - HEPATITIS C [None]
  - ADVERSE DRUG REACTION [None]
  - ACUTE MYOCARDIAL INFARCTION [None]
  - MULTI-ORGAN FAILURE [None]
  - DRUG HYPERSENSITIVITY [None]
